FAERS Safety Report 14199612 (Version 1)
Quarter: 2017Q4

REPORT INFORMATION
  Report Type: Spontaneous
  Country: JP (occurrence: JP)
  Receive Date: 20171117
  Receipt Date: 20171117
  Transmission Date: 20180321
  Serious: Yes (Death)
  Sender: FDA-Public Use
  Company Number: JP-ASTELLAS-2017US047765

PATIENT
  Age: 90 Year
  Sex: Male

DRUGS (1)
  1. AMBISOME [Suspect]
     Active Substance: AMPHOTERICIN B
     Indication: PNEUMONIA ASPIRATION
     Dosage: 2 VIALS, ONCE DAILY
     Route: 041

REACTIONS (1)
  - Pneumonia aspiration [Fatal]
